FAERS Safety Report 9261189 (Version 4)
Quarter: 2013Q3

REPORT INFORMATION
  Report Type: Report from Study
  Country: FR (occurrence: FR)
  Receive Date: 20130429
  Receipt Date: 20130709
  Transmission Date: 20140515
  Serious: Yes (Hospitalization)
  Sender: FDA-Public Use
  Company Number: PHHO2013FR005718

PATIENT
  Sex: 0

DRUGS (1)
  1. EVEROLIMUS [Suspect]
     Indication: NEUROFIBROMATOSIS
     Dosage: 10 MG, QD
     Route: 048
     Dates: start: 20120228, end: 20130310

REACTIONS (1)
  - Sudden hearing loss [Not Recovered/Not Resolved]
